FAERS Safety Report 12719830 (Version 1)
Quarter: 2016Q3

REPORT INFORMATION
  Report Type: Other
  Country: IT (occurrence: IT)
  Receive Date: 20160907
  Receipt Date: 20160907
  Transmission Date: 20161109
  Serious: Yes (Other)
  Sender: FDA-Public Use
  Company Number: IT-LUPIN PHARMACEUTICALS INC.-2016-04013

PATIENT
  Age: 23 Year
  Sex: Female

DRUGS (1)
  1. ETHINYL ESTRADIOL AND DROSPIRENONE [Suspect]
     Active Substance: DROSPIRENONE\ETHINYL ESTRADIOL
     Indication: CONTRACEPTION
     Route: 048

REACTIONS (2)
  - Progressive familial intrahepatic cholestasis [Recovering/Resolving]
  - Portal fibrosis [None]
